FAERS Safety Report 5249881-2 (Version None)
Quarter: 2007Q1

REPORT INFORMATION
  Report Type: 
  Country: None (occurrence: None)
  Receive Date: 20070228
  Receipt Date: 20070219
  Transmission Date: 20070707
  Serious: Yes (Hospitalization, Other)
  Sender: FDA-Public Use
  Company Number: 2007AC00325

PATIENT
  Age: 66 Year
  Sex: Male

DRUGS (11)
  1. ROPIVACAINE HYDROCHLORIDE [Suspect]
     Indication: LOCAL ANAESTHESIA
     Route: 047
  2. CLONIDINE [Suspect]
     Indication: LOCAL ANAESTHESIA
     Route: 047
  3. HYALURONIDASE [Suspect]
     Indication: LOCAL ANAESTHESIA
     Route: 047
  4. POVIDONE IODINE [Concomitant]
  5. CHLORAMPHENICOL [Concomitant]
     Route: 047
  6. CHLORAMPHENICOL [Concomitant]
     Route: 047
  7. GENTAMICIN [Concomitant]
     Route: 057
  8. DEXAMETHASONE [Concomitant]
     Route: 057
  9. PREDNISOLONE ACETATE [Concomitant]
     Route: 047
  10. PHENYLEPHRINE HYDROCHLORIDE [Concomitant]
     Route: 047
  11. BENZALKONIUM CHLORIDE [Concomitant]
     Route: 047

REACTIONS (1)
  - CELLULITIS ORBITAL [None]
